FAERS Safety Report 4943447-7 (Version None)
Quarter: 2006Q1

REPORT INFORMATION
  Report Type: 
  Country: None (occurrence: None)
  Receive Date: 20060313
  Receipt Date: 20060313
  Transmission Date: 20060701
  Serious: No
  Sender: FDA-Public Use
  Company Number: None

PATIENT
  Age: 46 Year
  Sex: Male

DRUGS (1)
  1. BALANCED SALT SOLUTION [Suspect]
     Dates: start: 20060104

REACTIONS (5)
  - CORNEAL INFILTRATES [None]
  - CORNEAL OEDEMA [None]
  - EYE DISORDER [None]
  - GLAUCOMA [None]
  - IRITIS [None]
